FAERS Safety Report 12465048 (Version 1)
Quarter: 2016Q2

REPORT INFORMATION
  Report Type: Spontaneous
  Country: CH (occurrence: CH)
  Receive Date: 20160614
  Receipt Date: 20160614
  Transmission Date: 20160815
  Serious: Yes (Other)
  Sender: FDA-Public Use
  Company Number: CH-TEVA-668139ISR

PATIENT
  Age: 55 Year
  Sex: Male

DRUGS (2)
  1. METHADONE [Interacting]
     Active Substance: METHADONE HYDROCHLORIDE
  2. MOXIFLOXACIN. [Suspect]
     Active Substance: MOXIFLOXACIN
     Indication: PNEUMONIA

REACTIONS (3)
  - Drug interaction [Recovered/Resolved]
  - Circulatory collapse [Recovered/Resolved]
  - Torsade de pointes [Recovered/Resolved]
